FAERS Safety Report 12461536 (Version 1)
Quarter: 2016Q2

REPORT INFORMATION
  Report Type: Other
  Country: GB (occurrence: GB)
  Receive Date: 20160613
  Receipt Date: 20160613
  Transmission Date: 20160815
  Serious: Yes (Hospitalization)
  Sender: FDA-Public Use
  Company Number: GB-MYLANLABS-2016M1023689

PATIENT

DRUGS (13)
  1. LACTULOSE. [Concomitant]
     Active Substance: LACTULOSE
     Dosage: UNK
  2. PARACETAMOL [Concomitant]
     Active Substance: ACETAMINOPHEN
     Dosage: UNK
  3. EPIRUBICIN [Suspect]
     Active Substance: EPIRUBICIN
     Dosage: UNK (100MG/50ML)
     Dates: start: 20160429
  4. RAMIPRIL. [Suspect]
     Active Substance: RAMIPRIL
     Dosage: 1.25 MG, UNK
     Dates: end: 20160513
  5. CODEINE [Concomitant]
     Active Substance: CODEINE
     Dosage: UNK
  6. ADCAL D3 [Concomitant]
     Active Substance: CALCIUM CARBONATE\CHOLECALCIFEROL
     Dosage: UNK (I BD)
  7. SENNA                              /00142201/ [Concomitant]
     Active Substance: SENNA LEAF
     Dosage: UNK
  8. BENDROFLUMETHIAZIDE [Suspect]
     Active Substance: BENDROFLUMETHIAZIDE
     Dosage: 2.5 MG, UNK
     Dates: end: 20160513
  9. CAPECITABINE. [Suspect]
     Active Substance: CAPECITABINE
     Dosage: 300 MG, UNK
     Dates: start: 20160429
  10. CISPLATIN. [Suspect]
     Active Substance: CISPLATIN
     Dosage: UNK (50MG/50ML)
     Dates: start: 20160429
  11. ALLOPURINOL. [Concomitant]
     Active Substance: ALLOPURINOL
     Dosage: UNK (300MG OD)
  12. OMEPRAZOLE. [Concomitant]
     Active Substance: OMEPRAZOLE
     Dosage: UNK (40MG OD)
  13. SIMVASTATIN. [Concomitant]
     Active Substance: SIMVASTATIN
     Dosage: UNK (40MG ON)

REACTIONS (10)
  - Neutropenic sepsis [Recovered/Resolved]
  - Rash vesicular [Recovered/Resolved]
  - Acute kidney injury [Recovered/Resolved]
  - Pulmonary embolism [Unknown]
  - Pyrexia [Unknown]
  - Hyponatraemia [Unknown]
  - Lethargy [Unknown]
  - Hypokalaemia [Unknown]
  - Generalised erythema [Unknown]
  - Pleuritic pain [Unknown]

NARRATIVE: CASE EVENT DATE: 20160513
